FAERS Safety Report 9878103 (Version 1)
Quarter: 2014Q1

REPORT INFORMATION
  Report Type: Spontaneous
  Country: US (occurrence: None)
  Receive Date: 20140204
  Receipt Date: 20140204
  Transmission Date: 20141002
  Serious: Yes (Other)
  Sender: FDA-Public Use
  Company Number: JPI-P-033109

PATIENT
  Age: 65 Year
  Sex: Female

DRUGS (1)
  1. XYREM (SODIUM OXYBATE) ORAL SOLUTION, 500MG/ML [Suspect]
     Indication: INSOMNIA
     Route: 048
     Dates: start: 20100812, end: 2010

REACTIONS (5)
  - Pneumothorax [None]
  - Pneumonia [None]
  - Bronchitis [None]
  - Nasopharyngitis [None]
  - Bedridden [None]
